FAERS Safety Report 6475125-X (Version None)
Quarter: 2009Q4

REPORT INFORMATION
  Report Type: 
  Country: None (occurrence: None)
  Receive Date: 20091204
  Receipt Date: 20090422
  Transmission Date: 20100525
  Serious: Yes (Hospitalization, Other)
  Sender: FDA-Public Use
  Company Number: DE-ELI_LILLY_AND_COMPANY-DE200902007755

PATIENT
  Age: 64 Year
  Sex: Male

DRUGS (12)
  1. CYMBALTA [Suspect]
     Indication: DEPRESSION
     Dosage: 1 D/F, DAILY (1/D)
     Route: 048
     Dates: start: 20081106, end: 20081124
  2. AMLODIPINE [Concomitant]
     Dosage: 5 MG, DAILY (1/D)
     Route: 048
  3. ATACAND [Concomitant]
     Dosage: 16 MG, DAILY (1/D)
     Route: 048
  4. CONCOR [Concomitant]
     Dosage: 5 MG, DAILY (1/D)
     Route: 048
  5. EZETROL [Concomitant]
     Dosage: 10 MG, UNKNOWN
     Route: 048
  6. JODID [Concomitant]
     Dosage: 1 D/F, DAILY (1/D)
     Route: 048
  7. NITROLINGUAL PUMPSPRAY [Concomitant]
     Dosage: 0.4 MG, UNKNOWN
     Route: 060
  8. PLAVIX [Concomitant]
     Dosage: 75 MG, DAILY (1/D)
     Route: 048
  9. RAMIPRIL [Concomitant]
     Dosage: 5 MG, DAILY (1/D)
     Route: 048
  10. SIMVASTATIN [Concomitant]
     Dosage: 40 MG, DAILY (1/D)
     Route: 050
  11. POTASSIUM IODIDE [Concomitant]
     Dosage: UNK, EACH MORNING
     Route: 065
  12. PANTOZOL [Concomitant]
     Dosage: 40 MG, EACH MORNING
     Route: 065

REACTIONS (9)
  - ABDOMINAL PAIN UPPER [None]
  - ANGIOLIPOMA [None]
  - BUNDLE BRANCH BLOCK RIGHT [None]
  - DIABETIC NEPHROPATHY [None]
  - DIZZINESS [None]
  - GASTRITIS EROSIVE [None]
  - NAUSEA [None]
  - RENAL CYST [None]
  - WEIGHT DECREASED [None]
